FAERS Safety Report 6445724-X (Version None)
Quarter: 2009Q4

REPORT INFORMATION
  Report Type: 
  Country: None (occurrence: None)
  Receive Date: 20091118
  Receipt Date: 20091118
  Transmission Date: 20100525
  Serious: Yes (Life-Threatening, Other)
  Sender: FDA-Public Use
  Company Number: None

PATIENT
  Age: 46 Year
  Sex: Female
  Weight: 56.246 kg

DRUGS (5)
  1. CYMBALTA [Suspect]
     Indication: ANXIETY
     Dosage: 1 - 30MG PILL ONCE PO
     Route: 048
     Dates: start: 20090727, end: 20090727
  2. LEXAPRO [Concomitant]
  3. SYMBACORT INHALER [Concomitant]
  4. CEPHLUXIN ANTIBIOTICS [Concomitant]
  5. BENADRYL [Concomitant]

REACTIONS (12)
  - BURNING SENSATION [None]
  - CHEST DISCOMFORT [None]
  - DIARRHOEA [None]
  - DIZZINESS [None]
  - DYSPHAGIA [None]
  - FOOD INTOLERANCE [None]
  - INSOMNIA [None]
  - LOSS OF CONSCIOUSNESS [None]
  - NIGHTMARE [None]
  - PALPITATIONS [None]
  - TINNITUS [None]
  - TREMOR [None]
